FAERS Safety Report 12434128 (Version 2)
Quarter: 2017Q2

REPORT INFORMATION
  Report Type: Spontaneous
  Country: US (occurrence: US)
  Receive Date: 20160603
  Receipt Date: 20170526
  Transmission Date: 20170830
  Serious: Yes (Other)
  Sender: FDA-Public Use
  Company Number: US-BRISTOL-MYERS SQUIBB COMPANY-BMS-2016-042141

PATIENT
  Sex: Male

DRUGS (1)
  1. OPDIVO [Suspect]
     Active Substance: NIVOLUMAB
     Indication: NON-SMALL CELL LUNG CANCER
     Dosage: UNK
     Route: 042
     Dates: start: 201602

REACTIONS (8)
  - Hyperthyroidism [Recovering/Resolving]
  - Blood creatine phosphokinase increased [Unknown]
  - Influenza [Unknown]
  - Pain in extremity [Unknown]
  - Swelling [Unknown]
  - Muscular weakness [Unknown]
  - Alopecia areata [Unknown]
  - Cough [Unknown]
